FAERS Safety Report 25765840 (Version 1)
Quarter: 2025Q3

REPORT INFORMATION
  Report Type: Spontaneous
  Country: US (occurrence: US)
  Receive Date: 20250905
  Receipt Date: 20250905
  Transmission Date: 20251021
  Serious: No
  Sender: DOMPE FARMACEUTICI
  Company Number: US-FARMAPROD-202407-2527

PATIENT
  Age: 60 Year
  Sex: Female

DRUGS (25)
  1. OXERVATE [Suspect]
     Active Substance: CENEGERMIN-BKBJ
     Indication: Neurotrophic keratopathy
     Route: 047
     Dates: start: 20240704
  2. OXERVATE [Suspect]
     Active Substance: CENEGERMIN-BKBJ
  3. PRED FORTE [Concomitant]
     Active Substance: PREDNISOLONE ACETATE
  4. MEDROXYPROGESTERONE ACETATE [Concomitant]
     Active Substance: MEDROXYPROGESTERONE ACETATE
  5. TRIAMCINOLONE ACETONIDE [Concomitant]
     Active Substance: TRIAMCINOLONE ACETONIDE
  6. TACROLIMUS [Concomitant]
     Active Substance: TACROLIMUS
  7. IBUPROFEN [Concomitant]
     Active Substance: IBUPROFEN
  8. CALCIUM\VITAMIN D [Concomitant]
     Active Substance: CALCIUM\VITAMIN D
  9. TRETINOIN [Concomitant]
     Active Substance: TRETINOIN
  10. AZELAIC ACID [Concomitant]
     Active Substance: AZELAIC ACID
  11. CALCIPOTRIENE [Concomitant]
     Active Substance: CALCIPOTRIENE
  12. TAZAROTENE [Concomitant]
     Active Substance: TAZAROTENE
  13. CLOBETASOL [Concomitant]
     Active Substance: CLOBETASOL
  14. MOMETASONE FUROATE [Concomitant]
     Active Substance: MOMETASONE FUROATE
  15. HALOBETASOL PROPIONATE [Concomitant]
     Active Substance: HALOBETASOL PROPIONATE
  16. MUPIROCIN [Concomitant]
     Active Substance: MUPIROCIN
  17. BOTOX [Concomitant]
     Active Substance: ONABOTULINUMTOXINA
  18. VITAMINS [Concomitant]
     Active Substance: VITAMINS
  19. INVELTYS [Concomitant]
     Active Substance: LOTEPREDNOL ETABONATE
  20. METHYLPHENIDATE [Concomitant]
     Active Substance: METHYLPHENIDATE
  21. ESTRADIOL [Concomitant]
     Active Substance: ESTRADIOL
  22. DOXYCYCLINE HYCLATE [Concomitant]
     Active Substance: DOXYCYCLINE HYCLATE
  23. DIAZEPAM [Concomitant]
     Active Substance: DIAZEPAM
  24. GABAPENTIN [Concomitant]
     Active Substance: GABAPENTIN
  25. OTEZLA [Concomitant]
     Active Substance: APREMILAST

REACTIONS (7)
  - Eye swelling [Not Recovered/Not Resolved]
  - Lacrimation increased [Not Recovered/Not Resolved]
  - Eye pain [Recovering/Resolving]
  - Vision blurred [Unknown]
  - Eyelid pain [Unknown]
  - Headache [Unknown]
  - Eye irritation [Recovering/Resolving]

NARRATIVE: CASE EVENT DATE: 20240716
